FAERS Safety Report 7201568-2 (Version None)
Quarter: 2010Q4

REPORT INFORMATION
  Report Type: 
  Country: None (occurrence: None)
  Receive Date: 20101214
  Receipt Date: 20101130
  Transmission Date: 20110411
  Serious: Yes (Hospitalization)
  Sender: FDA-Public Use
  Company Number: 2010SP002601

PATIENT
  Age: 58 Year
  Sex: Female
  Weight: 104.3 kg

DRUGS (37)
  1. XOPENEX [Suspect]
     Indication: ASTHMA
     Dosage: 1.25 MG;3ML;PRN;INHALATION ; 0.31 MG/3ML;TID;INHALATION
     Route: 055
     Dates: end: 20100701
  2. XOPENEX [Suspect]
     Indication: RESTRICTIVE PULMONARY DISEASE
     Dosage: 1.25 MG;3ML;PRN;INHALATION ; 0.31 MG/3ML;TID;INHALATION
     Route: 055
     Dates: end: 20100701
  3. XOPENEX [Suspect]
     Indication: ASTHMA
     Dosage: 1.25 MG;3ML;PRN;INHALATION ; 0.31 MG/3ML;TID;INHALATION
     Route: 055
     Dates: start: 20100701
  4. XOPENEX [Suspect]
     Indication: RESTRICTIVE PULMONARY DISEASE
     Dosage: 1.25 MG;3ML;PRN;INHALATION ; 0.31 MG/3ML;TID;INHALATION
     Route: 055
     Dates: start: 20100701
  5. CARDIZEM CD [Concomitant]
  6. REQUIP [Concomitant]
  7. KLONOPIN [Concomitant]
  8. LASIX [Concomitant]
  9. TRAZODONE [Concomitant]
  10. CELEXA [Concomitant]
  11. K-DUR [Concomitant]
  12. BONIVA [Concomitant]
  13. PREDNISONE [Concomitant]
  14. OMEPRAZOLE [Concomitant]
  15. ASPIRIN [Concomitant]
  16. ZOFRAN [Concomitant]
  17. BACLOFEN [Concomitant]
  18. KEPPRA [Concomitant]
  19. LEVEMIR [Concomitant]
  20. CALCIUM [Concomitant]
  21. IMITREX [Concomitant]
  22. LORTAB [Concomitant]
  23. FORADIL /00958001/ [Concomitant]
  24. PULMICORT [Concomitant]
  25. ALPHAGAN /01341102/ [Concomitant]
  26. PILOCARPINE [Concomitant]
  27. IRON [Concomitant]
  28. VITAMIN B12 /00056201/ [Concomitant]
  29. VITAMIN C /00008001/ [Concomitant]
  30. VITAMIN A [Concomitant]
  31. FLORA [Concomitant]
  32. AMBIEN [Concomitant]
  33. ULTRAM [Concomitant]
  34. LOMOTIL /00034001/ [Concomitant]
  35. OXYGEN [Concomitant]
  36. XALATAN [Concomitant]
  37. PREV MEDS [Concomitant]

REACTIONS (29)
  - ANAEMIA [None]
  - BACK PAIN [None]
  - BLINDNESS UNILATERAL [None]
  - BLOOD CULTURE POSITIVE [None]
  - BLOOD GLUCOSE INCREASED [None]
  - CHILLS [None]
  - CONTUSION [None]
  - DEEP VEIN THROMBOSIS [None]
  - DISEASE RECURRENCE [None]
  - ESCHERICHIA INFECTION [None]
  - HEADACHE [None]
  - HERPES ZOSTER [None]
  - INTRAOCULAR PRESSURE INCREASED [None]
  - KIDNEY INFECTION [None]
  - MYELITIS [None]
  - MYELITIS TRANSVERSE [None]
  - NAUSEA [None]
  - PRESYNCOPE [None]
  - SEPSIS [None]
  - STAPHYLOCOCCAL INFECTION [None]
  - THROMBOSIS [None]
  - TREMOR [None]
  - URINARY TRACT INFECTION [None]
  - VISUAL ACUITY REDUCED [None]
  - VITAMIN B12 DEFICIENCY [None]
  - VITAMIN C DEFICIENCY [None]
  - VITAMIN D DEFICIENCY [None]
  - VOMITING [None]
  - WHEEZING [None]
